FAERS Safety Report 8718066 (Version 2)
Quarter: 2014Q2

REPORT INFORMATION
  Report Type: Spontaneous
  Country: US (occurrence: US)
  Receive Date: 20120810
  Receipt Date: 20140515
  Transmission Date: 20141212
  Serious: Yes (Hospitalization)
  Sender: FDA-Public Use
  Company Number: US-JNJFOC-20120802077

PATIENT
  Sex: Female
  Weight: 58.97 kg

DRUGS (3)
  1. DURAGESIC [Suspect]
     Indication: ARTHRITIS
     Route: 062
  2. DURAGESIC [Suspect]
     Indication: ARTHRITIS
     Dosage: 100 UG/HR AND 100 UG/HR
     Route: 062
  3. DURAGESIC [Suspect]
     Indication: ARTHRITIS
     Route: 062

REACTIONS (11)
  - Pneumonia [Unknown]
  - Fear of death [Recovered/Resolved]
  - Drug dose omission [Unknown]
  - Drug administered at inappropriate site [Not Recovered/Not Resolved]
  - Product adhesion issue [Recovered/Resolved]
  - Wrong technique in drug usage process [Recovered/Resolved]
  - Dermatitis contact [Not Recovered/Not Resolved]
  - Application site infection [Recovered/Resolved]
  - Application site rash [Recovered/Resolved]
  - Application site erythema [Not Recovered/Not Resolved]
  - Drug administered at inappropriate site [Not Recovered/Not Resolved]
